FAERS Safety Report 16668248 (Version 1)
Quarter: 2019Q3

REPORT INFORMATION
  Report Type: Spontaneous
  Country: US (occurrence: US)
  Receive Date: 20190619
  Receipt Date: 20190619
  Transmission Date: 20191004
  Serious: Yes (Hospitalization)
  Sender: FDA-Public Use
  Company Number: None

PATIENT

DRUGS (2)
  1. MELOXICAM 15MG [Suspect]
     Active Substance: MELOXICAM
     Indication: ARTHRALGIA
     Dosage: ?          QUANTITY:1 DF DOSAGE FORM;?
     Route: 048
     Dates: start: 201602, end: 201605
  2. MELOXICAM 15MG [Suspect]
     Active Substance: MELOXICAM
     Indication: SWELLING

REACTIONS (7)
  - Headache [None]
  - Fall [None]
  - Renal failure [None]
  - Diarrhoea [None]
  - Dizziness [None]
  - Asthenia [None]
  - Hypoaesthesia [None]
